FAERS Safety Report 12662774 (Version 1)
Quarter: 2016Q3

REPORT INFORMATION
  Report Type: Spontaneous
  Country: US (occurrence: US)
  Receive Date: 20160818
  Receipt Date: 20160818
  Transmission Date: 20161109
  Serious: Yes (Other)
  Sender: FDA-Public Use
  Company Number: US-STRIDES ARCOLAB LIMITED-2016SP008535

PATIENT

DRUGS (4)
  1. TACROLIMUS. [Suspect]
     Active Substance: TACROLIMUS
     Indication: IMMUNOSUPPRESSION
     Dosage: UNK
  2. CYCLOPHOSPHAMIDE. [Concomitant]
     Active Substance: CYCLOPHOSPHAMIDE
     Indication: LEUKAEMIA RECURRENT PROPHYLAXIS
     Dosage: UNKNOWN
  3. CICLOSPORIN A [Suspect]
     Active Substance: CYCLOSPORINE
     Indication: IMMUNOSUPPRESSION
     Dosage: UNKNOWN
  4. SIROLIMUS. [Suspect]
     Active Substance: SIROLIMUS
     Indication: IMMUNOSUPPRESSION
     Dosage: UNKNOWN
     Route: 065

REACTIONS (9)
  - Insomnia [Recovered/Resolved]
  - Cough [Unknown]
  - Respiratory failure [Unknown]
  - Malaise [Unknown]
  - Fatigue [Unknown]
  - Anterograde amnesia [Not Recovered/Not Resolved]
  - Pyrexia [Unknown]
  - Human herpesvirus 6 infection [Recovered/Resolved]
  - Hallucination, visual [Recovered/Resolved]
